FAERS Safety Report 18050129 (Version 2)
Quarter: 2020Q4

REPORT INFORMATION
  Report Type: Report from Study
  Country: US (occurrence: US)
  Receive Date: 20200721
  Receipt Date: 20201001
  Transmission Date: 20210113
  Serious: Yes (Hospitalization)
  Sender: FDA-Public Use
  Company Number: US-ROCHE-2637263

PATIENT
  Age: 51 Year
  Sex: Female
  Weight: 66.5 kg

DRUGS (7)
  1. NORMAL SALINE [Concomitant]
     Active Substance: SODIUM CHLORIDE
     Dosage: 1L BOLUS
     Route: 042
     Dates: start: 20200702
  2. IPATASERTIB. [Suspect]
     Active Substance: IPATASERTIB
     Indication: TRIPLE NEGATIVE BREAST CANCER
     Dosage: S
     Route: 048
     Dates: start: 20200618
  3. PREDNISONE. [Concomitant]
     Active Substance: PREDNISONE
     Dates: start: 20200702
  4. CEFEPIME [Concomitant]
     Active Substance: CEFEPIME HYDROCHLORIDE
     Route: 040
     Dates: start: 20200702
  5. DOXEPINE [Concomitant]
     Active Substance: DOXEPIN
  6. ATEZOLIZUMAB. [Suspect]
     Active Substance: ATEZOLIZUMAB
     Indication: TRIPLE NEGATIVE BREAST CANCER
     Route: 042
     Dates: start: 20200618
  7. VANCOMYCIN [Concomitant]
     Active Substance: VANCOMYCIN
     Dosage: NS 1L
     Route: 040
     Dates: start: 20200702

REACTIONS (6)
  - Rash maculo-papular [Recovered/Resolved]
  - Chills [Unknown]
  - Somnolence [Unknown]
  - Hypotension [Recovered/Resolved]
  - Pyrexia [Unknown]
  - Oral disorder [Unknown]

NARRATIVE: CASE EVENT DATE: 20200702
